FAERS Safety Report 5082260-X (Version None)
Quarter: 2006Q3

REPORT INFORMATION
  Report Type: 
  Country: None (occurrence: None)
  Receive Date: 20060816
  Receipt Date: 20060816
  Transmission Date: 20061208
  Serious: Yes (Other)
  Sender: FDA-Public Use
  Company Number: None

PATIENT
  Age: 39 Year
  Sex: Male

DRUGS (1)
  1. PHENOBARBITAL TAB [Suspect]
     Dosage: TABLET

REACTIONS (2)
  - DRUG DISPENSING ERROR [None]
  - MEDICATION ERROR [None]
